FAERS Safety Report 6505581-X (Version None)
Quarter: 2009Q4

REPORT INFORMATION
  Report Type: 
  Country: None (occurrence: None)
  Receive Date: 20091218
  Receipt Date: 20091125
  Transmission Date: 20100525
  Serious: No
  Sender: FDA-Public Use
  Company Number: FR-ROCHE-673810

PATIENT
  Age: 5 Year
  Weight: 15 kg

DRUGS (1)
  1. TAMIFLU [Suspect]
     Indication: INFLUENZA
     Route: 048
     Dates: start: 20091124, end: 20091125

REACTIONS (2)
  - NO ADVERSE EVENT [None]
  - OVERDOSE [None]
